FAERS Safety Report 12487949 (Version 1)
Quarter: 2016Q2

REPORT INFORMATION
  Report Type: Spontaneous
  Country: IT (occurrence: IT)
  Receive Date: 20160622
  Receipt Date: 20160622
  Transmission Date: 20160815
  Serious: Yes (Other)
  Sender: FDA-Public Use
  Company Number: IT-AUROBINDO-AUR-APL-2016-07792

PATIENT
  Age: 31 Year
  Sex: Female

DRUGS (2)
  1. ESCITALOPRAM FILM-COATED TABLETS [Suspect]
     Active Substance: ESCITALOPRAM OXALATE
     Indication: PRODUCT USED FOR UNKNOWN INDICATION
     Dosage: 27 DF, UNK
     Route: 048
     Dates: start: 20160322, end: 20160322
  2. DEPAKIN [Suspect]
     Active Substance: VALPROATE SODIUM
     Indication: PRODUCT USED FOR UNKNOWN INDICATION
     Dosage: 20 DF, TOTAL
     Route: 048
     Dates: start: 20160322, end: 20160322

REACTIONS (3)
  - Sopor [Recovering/Resolving]
  - Drug abuse [Recovering/Resolving]
  - Toxicity to various agents [Recovering/Resolving]

NARRATIVE: CASE EVENT DATE: 20160322
